FAERS Safety Report 17568443 (Version 1)
Quarter: 2020Q1

REPORT INFORMATION
  Report Type: Report from Study
  Country: US (occurrence: US)
  Receive Date: 20200320
  Receipt Date: 20200320
  Transmission Date: 20200409
  Serious: Yes (Hospitalization, Other)
  Sender: FDA-Public Use
  Company Number: US-BAUSCH-BL-2018-035242

PATIENT
  Age: 64 Year
  Sex: Female

DRUGS (1)
  1. XIFAXAN [Suspect]
     Active Substance: RIFAXIMIN
     Indication: HEPATIC CIRRHOSIS
     Route: 048
     Dates: start: 2016

REACTIONS (8)
  - Localised infection [Unknown]
  - Osteomalacia [Unknown]
  - Memory impairment [Unknown]
  - Sepsis [Unknown]
  - Pyrexia [Recovered/Resolved]
  - Renal impairment [Unknown]
  - Wound infection bacterial [Unknown]
  - Depression [Unknown]

NARRATIVE: CASE EVENT DATE: 2020
